FAERS Safety Report 18018055 (Version 2)
Quarter: 2025Q2

REPORT INFORMATION
  Report Type: Report from Study
  Country: DE (occurrence: DE)
  Receive Date: 20200713
  Receipt Date: 20250628
  Transmission Date: 20250716
  Serious: Yes (Other)
  Sender: AUROBINDO
  Company Number: DE-MYLANLABS-2020M1061150

PATIENT
  Age: 42 Year
  Sex: Male

DRUGS (4)
  1. EFAVIRENZ [Suspect]
     Active Substance: EFAVIRENZ
     Indication: HIV infection
     Route: 065
  2. LAMIVUDINE [Suspect]
     Active Substance: LAMIVUDINE
     Indication: HIV infection
     Route: 065
  3. ZIDOVUDINE [Suspect]
     Active Substance: ZIDOVUDINE
     Indication: HIV infection
     Route: 065
  4. TELBIVUDINE [Concomitant]
     Active Substance: TELBIVUDINE
     Indication: Product used for unknown indication
     Route: 065

REACTIONS (1)
  - Pathogen resistance [Unknown]
